FAERS Safety Report 5883028-4 (Version None)
Quarter: 2008Q3

REPORT INFORMATION
  Report Type: 
  Country: None (occurrence: None)
  Receive Date: 20080913
  Receipt Date: 20080826
  Transmission Date: 20090109
  Serious: No
  Sender: FDA-Public Use
  Company Number: US-ABBOTT-08P-163-0472689-00

PATIENT
  Sex: Female
  Weight: 145.28 kg

DRUGS (8)
  1. HUMIRA [Suspect]
     Indication: PSORIATIC ARTHROPATHY
     Route: 058
     Dates: start: 20080701
  2. HUMIRA [Suspect]
     Indication: PSORIASIS
  3. FLUOXETINE [Concomitant]
     Indication: DEPRESSION
  4. METFORMIN HCL [Concomitant]
     Indication: DIABETES MELLITUS
  5. ESOMEPRAZOLE MAGNESIUM [Concomitant]
     Indication: GASTROOESOPHAGEAL REFLUX DISEASE
  6. NICOTINIC ACID [Concomitant]
     Indication: BLOOD CHOLESTEROL INCREASED
  7. FUROSEMIDE [Concomitant]
     Indication: FLUID RETENTION
  8. POTASSIUM CHLORIDE [Concomitant]
     Indication: MINERAL SUPPLEMENTATION

REACTIONS (1)
  - LOW DENSITY LIPOPROTEIN INCREASED [None]
